FAERS Safety Report 21967223 (Version 2)
Quarter: 2023Q2

REPORT INFORMATION
  Report Type: Spontaneous
  Country: US (occurrence: US)
  Receive Date: 20230208
  Receipt Date: 20230509
  Transmission Date: 20230722
  Serious: No
  Sender: FDA-Public Use
  Company Number: US-SA-SAC20230206001292

PATIENT
  Sex: Female

DRUGS (1)
  1. DUPIXENT [Suspect]
     Active Substance: DUPILUMAB
     Dosage: 300 MG; FREQUENCY: OTHER
     Route: 058
     Dates: end: 2023

REACTIONS (5)
  - Wound [Unknown]
  - Eye infection [Unknown]
  - Anxiety [Unknown]
  - Eye irritation [Recovered/Resolved]
  - Conjunctivitis [Recovered/Resolved]
